FAERS Safety Report 8409764-3 (Version None)
Quarter: 2012Q2

REPORT INFORMATION
  Report Type: 
  Country: None (occurrence: None)
  Receive Date: 20120605
  Receipt Date: 20120524
  Transmission Date: 20120825
  Serious: Yes (Hospitalization, Other)
  Sender: FDA-Public Use
  Company Number: CA-JNJFOC-20120504780

PATIENT
  Sex: Female
  Weight: 48.8 kg

DRUGS (2)
  1. REMICADE [Suspect]
     Indication: CROHN'S DISEASE
     Route: 042
     Dates: start: 20100903
  2. REMICADE [Suspect]
     Route: 042
     Dates: start: 20080903

REACTIONS (3)
  - WEIGHT DECREASED [None]
  - INTESTINAL OBSTRUCTION [None]
  - SURGERY [None]
